FAERS Safety Report 7443097-7 (Version None)
Quarter: 2011Q2

REPORT INFORMATION
  Report Type: 
  Country: None (occurrence: None)
  Receive Date: 20110428
  Receipt Date: 20110415
  Transmission Date: 20111010
  Serious: Yes (Other)
  Sender: FDA-Public Use
  Company Number: BR-SANOFI-AVENTIS-2011SA023662

PATIENT
  Age: 86 Year
  Sex: Female
  Weight: 67 kg

DRUGS (10)
  1. SOLOSTAR [Suspect]
     Dates: start: 20110101
  2. LORAZEPAM [Concomitant]
     Indication: SLEEP DISORDER
     Route: 048
     Dates: start: 20050101
  3. SOLOSTAR [Suspect]
  4. EXELON [Concomitant]
     Route: 048
  5. VALSARTAN [Concomitant]
     Indication: BLOOD PRESSURE
     Route: 048
     Dates: start: 20060101
  6. SOLOSTAR [Suspect]
     Route: 058
     Dates: start: 20110101, end: 20110101
  7. NOVORAPID [Concomitant]
     Route: 048
     Dates: start: 20070101
  8. LANTUS [Suspect]
  9. LANTUS [Suspect]
     Route: 058
     Dates: start: 20110101, end: 20110101
  10. LANTUS [Suspect]
     Dates: start: 20110101

REACTIONS (6)
  - FATIGUE [None]
  - HIP FRACTURE [None]
  - PAIN [None]
  - SLUGGISHNESS [None]
  - FALL [None]
  - HYPERGLYCAEMIA [None]
